FAERS Safety Report 22036044 (Version 2)
Quarter: 2023Q1

REPORT INFORMATION
  Report Type: Spontaneous
  Country: CN (occurrence: CN)
  Receive Date: 20230224
  Receipt Date: 20230302
  Transmission Date: 20230418
  Serious: No
  Sender: FDA-Public Use
  Company Number: CN-009507513-2302CHN007444

PATIENT
  Age: 71 Year
  Sex: Male
  Weight: 90 kg

DRUGS (1)
  1. JANUVIA [Suspect]
     Active Substance: SITAGLIPTIN PHOSPHATE
     Indication: Blood glucose
     Dosage: 50 MG, QD, ORAL
     Route: 048
     Dates: start: 20230214, end: 20230214

REACTIONS (3)
  - Abdominal pain upper [Recovering/Resolving]
  - Chest discomfort [Unknown]
  - Dyspnoea [Unknown]

NARRATIVE: CASE EVENT DATE: 20230214
